FAERS Safety Report 8230950-X (Version None)
Quarter: 2012Q1

REPORT INFORMATION
  Report Type: 
  Country: None (occurrence: None)
  Receive Date: 20120323
  Receipt Date: 20120313
  Transmission Date: 20120608
  Serious: Yes (Other)
  Sender: FDA-Public Use
  Company Number: US-ELI_LILLY_AND_COMPANY-US201203004649

PATIENT
  Age: 61 Year
  Sex: Male

DRUGS (3)
  1. CYMBALTA [Suspect]
     Indication: MAJOR DEPRESSION
     Dosage: 60 MG, QD
  2. SYNTHROID [Concomitant]
  3. CYMBALTA [Suspect]
     Dosage: 60 MG, QD

REACTIONS (1)
  - RENAL HAEMORRHAGE [None]
